FAERS Safety Report 8343291-7 (Version None)
Quarter: 2012Q2

REPORT INFORMATION
  Report Type: 
  Country: None (occurrence: None)
  Receive Date: 20120508
  Receipt Date: 20120430
  Transmission Date: 20120825
  Serious: Yes (Other)
  Sender: FDA-Public Use
  Company Number: PHHY2012GB037032

PATIENT
  Age: 48 Year
  Sex: Female
  Weight: 70 kg

DRUGS (9)
  1. DOMPERIDONE [Suspect]
     Dosage: 20 MG, UNK
     Route: 048
  2. BIOTENE [Concomitant]
  3. CHLORPHENIRAMINE MALEATE [Suspect]
     Dosage: 10 MG, UNK
     Route: 042
  4. DEXAMETHASONE [Suspect]
     Dosage: 4 MG, BID
     Route: 048
  5. GRANISETRON [Suspect]
     Dosage: 1 MG, UNK
     Route: 048
  6. NEULASTA [Suspect]
     Indication: CHEMOTHERAPY
     Dosage: 6 MG, UNK
     Route: 058
  7. PACLITAXEL [Suspect]
     Indication: BREAST CANCER
     Route: 042
     Dates: start: 20110524, end: 20110705
  8. RANITIDINE [Suspect]
     Dosage: 50 MG, UNK
     Route: 042
  9. DOCUSATE [Concomitant]

REACTIONS (3)
  - CHEST DISCOMFORT [None]
  - FATIGUE [None]
  - DYSPNOEA [None]
